FAERS Safety Report 12708619 (Version 9)
Quarter: 2017Q3

REPORT INFORMATION
  Report Type: Report from Study
  Country: US (occurrence: US)
  Receive Date: 20160901
  Receipt Date: 20170907
  Transmission Date: 20171127
  Serious: Yes (Death, Hospitalization)
  Sender: FDA-Public Use
  Company Number: US-BIOGEN-2016BI00284902

PATIENT
  Age: 27 Year
  Sex: Male

DRUGS (7)
  1. TYSABRI [Suspect]
     Active Substance: NATALIZUMAB
     Indication: MULTIPLE SCLEROSIS
     Dosage: INFUSED OVER ONE HOUR
     Route: 042
     Dates: start: 20140213, end: 20160224
  2. TYSABRI [Suspect]
     Active Substance: NATALIZUMAB
     Route: 042
  3. AMPYRA [Concomitant]
     Active Substance: DALFAMPRIDINE
     Indication: MULTIPLE SCLEROSIS
  4. HUMALOG [Concomitant]
     Active Substance: INSULIN LISPRO
     Indication: PRODUCT USED FOR UNKNOWN INDICATION
     Route: 065
  5. AMPYRA [Concomitant]
     Active Substance: DALFAMPRIDINE
     Indication: GAIT DISTURBANCE
     Route: 048
     Dates: start: 20140625
  6. AMPYRA [Concomitant]
     Active Substance: DALFAMPRIDINE
     Indication: ASTHENIA
  7. LANTUS [Concomitant]
     Active Substance: INSULIN GLARGINE
     Indication: PRODUCT USED FOR UNKNOWN INDICATION
     Route: 065

REACTIONS (9)
  - Multiple sclerosis [Fatal]
  - Gait inability [Unknown]
  - General physical health deterioration [Unknown]
  - Dysstasia [Unknown]
  - Fall [Recovered/Resolved]
  - Dehydration [Not Recovered/Not Resolved]
  - Mobility decreased [Not Recovered/Not Resolved]
  - Posture abnormal [Unknown]
  - Type 1 diabetes mellitus [Fatal]

NARRATIVE: CASE EVENT DATE: 2016
